FAERS Safety Report 13792739 (Version 1)
Quarter: 2017Q3

REPORT INFORMATION
  Report Type: Spontaneous
  Country: AR (occurrence: AR)
  Receive Date: 20170726
  Receipt Date: 20170726
  Transmission Date: 20171127
  Serious: Yes (Other)
  Sender: FDA-Public Use
  Company Number: AR-PFIZER INC-2017323685

PATIENT
  Age: 83 Year
  Sex: Female

DRUGS (1)
  1. SUTENT [Suspect]
     Active Substance: SUNITINIB MALATE
     Indication: METASTATIC RENAL CELL CARCINOMA
     Dosage: 50 MG, WEEKLY (SCHEME 14/7)
     Dates: start: 20161201, end: 20170412

REACTIONS (2)
  - Intra-abdominal haemorrhage [Unknown]
  - Faeces discoloured [Recovering/Resolving]

NARRATIVE: CASE EVENT DATE: 20170720
